FAERS Safety Report 6909248-5 (Version None)
Quarter: 2010Q3

REPORT INFORMATION
  Report Type: 
  Country: None (occurrence: None)
  Receive Date: 20100805
  Receipt Date: 20100727
  Transmission Date: 20110219
  Serious: Yes (Other)
  Sender: FDA-Public Use
  Company Number: US-WYE-H16685210

PATIENT
  Sex: Male

DRUGS (1)
  1. EFFEXOR XR [Suspect]
     Route: 048

REACTIONS (4)
  - AGGRESSION [None]
  - DRUG WITHDRAWAL SYNDROME [None]
  - JUDGEMENT IMPAIRED [None]
  - MOOD SWINGS [None]
